FAERS Safety Report 5758877-3 (Version None)
Quarter: 2008Q2

REPORT INFORMATION
  Report Type: 
  Country: None (occurrence: None)
  Receive Date: 20080604
  Receipt Date: 20080527
  Transmission Date: 20081010
  Serious: Yes (Other)
  Sender: FDA-Public Use
  Company Number: PHBS2008US04651

PATIENT
  Age: 73 Year
  Sex: Female

DRUGS (3)
  1. METOPROLOL TARTRATE [Suspect]
     Indication: ATRIAL FIBRILLATION
     Dosage: UNK, UNK
     Route: 065
  2. ANTIBIOTICS [Concomitant]
     Indication: PROPHYLAXIS
     Dosage: UNK, UNK
     Route: 065
  3. OPIOID ANAESTHETICS [Concomitant]
     Indication: CHEST PAIN
     Dosage: UNK, UNK
     Route: 065

REACTIONS (5)
  - ASPIRATION PLEURAL CAVITY [None]
  - CHEST PAIN [None]
  - DRESSLER'S SYNDROME [None]
  - DYSPNOEA [None]
  - PYREXIA [None]
